FAERS Safety Report 13430228 (Version 1)
Quarter: 2017Q2

REPORT INFORMATION
  Report Type: Spontaneous
  Country: US (occurrence: US)
  Receive Date: 20170411
  Receipt Date: 20170411
  Transmission Date: 20170830
  Serious: No
  Sender: FDA-Public Use
  Company Number: None

PATIENT
  Sex: Female

DRUGS (2)
  1. IBRANCE [Suspect]
     Active Substance: PALBOCICLIB
     Indication: BREAST CANCER FEMALE
     Dosage: 125 MG QD X 21 DAYS, OFF 7 DAYS PO
     Route: 048
     Dates: start: 20170307, end: 20170407
  2. IBRANCE [Suspect]
     Active Substance: PALBOCICLIB
     Indication: BREAST CANCER FEMALE
     Dosage: 75 MG QD X 21 DAYS, OFF 7 DAYS PO
     Route: 048
     Dates: start: 20170407

REACTIONS (2)
  - Palmar-plantar erythrodysaesthesia syndrome [None]
  - Therapy change [None]
